FAERS Safety Report 20409115 (Version 1)
Quarter: 2022Q1

REPORT INFORMATION
  Report Type: Report from Study
  Country: CO (occurrence: CO)
  Receive Date: 20220201
  Receipt Date: 20220201
  Transmission Date: 20220424
  Serious: Yes (Other)
  Sender: FDA-Public Use
  Company Number: CO-NOVARTISPH-NVSC2022CO019343

PATIENT
  Sex: Female
  Weight: 61 kg

DRUGS (1)
  1. LOSARTAN [Suspect]
     Active Substance: LOSARTAN
     Indication: Hypertension
     Dosage: UNK, SINCE 2013 (WITHOUT EXACT DATE)
     Route: 048
     Dates: start: 2013

REACTIONS (3)
  - Diabetes mellitus [Unknown]
  - Breast cancer [Unknown]
  - Coagulopathy [Unknown]

NARRATIVE: CASE EVENT DATE: 20140101
